FAERS Safety Report 6582837-6 (Version None)
Quarter: 2010Q1

REPORT INFORMATION
  Report Type: 
  Country: None (occurrence: None)
  Receive Date: 20100212
  Receipt Date: 20100212
  Transmission Date: 20100710
  Serious: Yes (Hospitalization)
  Sender: FDA-Public Use
  Company Number: None

PATIENT
  Age: 57 Year
  Weight: 87.32 kg

DRUGS (1)
  1. SULFAMETHOXAZOLE AND TRIMETHOPRIM [Suspect]
     Indication: RASH
     Dosage: 800/160 MG BID PO
     Route: 048
     Dates: start: 20090707, end: 20090716

REACTIONS (3)
  - ERYTHEMA MULTIFORME [None]
  - PYREXIA [None]
  - THROAT IRRITATION [None]
